FAERS Safety Report 21644810 (Version 5)
Quarter: 2023Q1

REPORT INFORMATION
  Report Type: Report from Study
  Country: US (occurrence: US)
  Receive Date: 20221125
  Receipt Date: 20230216
  Transmission Date: 20230418
  Serious: No
  Sender: FDA-Public Use
  Company Number: US-002147023-NVSC2022US265679

PATIENT
  Sex: Male

DRUGS (2)
  1. ENTRESTO [Suspect]
     Active Substance: SACUBITRIL\VALSARTAN
     Indication: Product used for unknown indication
     Dosage: 1 DOSAGE FORM, BID
     Route: 048
  2. ENTRESTO [Suspect]
     Active Substance: SACUBITRIL\VALSARTAN
     Dosage: 0.5 DOSAGE FORM, BID (1/2 TWICE A DAY)
     Route: 048

REACTIONS (5)
  - Renal disorder [Unknown]
  - Fatigue [Unknown]
  - Hypotension [Recovered/Resolved]
  - Wrong technique in product usage process [Not Recovered/Not Resolved]
  - Prescribed underdose [Not Recovered/Not Resolved]
